FAERS Safety Report 16936992 (Version 8)
Quarter: 2021Q1

REPORT INFORMATION
  Report Type: Spontaneous
  Country: US (occurrence: US)
  Receive Date: 20191018
  Receipt Date: 20210317
  Transmission Date: 20210419
  Serious: Yes (Other)
  Sender: FDA-Public Use
  Company Number: US-PFIZER INC-2018362280

PATIENT
  Age: 89 Year
  Sex: Female
  Weight: 77.56 kg

DRUGS (3)
  1. LYRICA [Suspect]
     Active Substance: PREGABALIN
     Indication: NERVE INJURY
  2. LYRICA [Suspect]
     Active Substance: PREGABALIN
     Indication: LUMBAR SPINAL STENOSIS
     Dosage: 50 MG, 2X/DAY
     Route: 048
     Dates: start: 20181203
  3. LYRICA [Suspect]
     Active Substance: PREGABALIN
     Indication: SPINAL CLAUDICATION
     Dosage: 50 MG, 2X/DAY
     Route: 048
     Dates: start: 20200604

REACTIONS (4)
  - Musculoskeletal discomfort [Unknown]
  - Limb injury [Unknown]
  - Memory impairment [Unknown]
  - Glaucoma [Unknown]
